FAERS Safety Report 12938396 (Version 3)
Quarter: 2016Q4

REPORT INFORMATION
  Report Type: Spontaneous
  Country: PT (occurrence: PT)
  Receive Date: 20161114
  Receipt Date: 20161130
  Transmission Date: 20170207
  Serious: Yes (Hospitalization, Other)
  Sender: FDA-Public Use
  Company Number: PT-TEVA-711070ISR

PATIENT
  Age: 23 Year
  Sex: Female

DRUGS (1)
  1. ESCITALOPRAM [Suspect]
     Active Substance: ESCITALOPRAM OXALATE
     Indication: PSYCHIATRIC SYMPTOM
     Dosage: 10 MILLIGRAM DAILY;

REACTIONS (3)
  - Carcinoid syndrome [Recovered/Resolved]
  - Metastases to liver [Unknown]
  - Pancreatic neuroendocrine tumour [Recovered/Resolved]

NARRATIVE: CASE EVENT DATE: 201207
